FAERS Safety Report 7142018-4 (Version None)
Quarter: 2010Q4

REPORT INFORMATION
  Report Type: 
  Country: None (occurrence: None)
  Receive Date: 20101207
  Receipt Date: 20101202
  Transmission Date: 20110411
  Serious: Yes (Life-Threatening, Hospitalization)
  Sender: FDA-Public Use
  Company Number: A0885982A

PATIENT
  Age: 95 Year
  Sex: Male

DRUGS (2)
  1. PROMACTA [Suspect]
     Dosage: 75MG PER DAY
     Dates: start: 20100712, end: 20100826
  2. ROMIPLOSTIM [Concomitant]

REACTIONS (5)
  - DRUG INEFFECTIVE [None]
  - EPISTAXIS [None]
  - GASTROINTESTINAL HAEMORRHAGE [None]
  - MELAENA [None]
  - RECTAL HAEMORRHAGE [None]
